FAERS Safety Report 10156010 (Version 2)
Quarter: 2014Q2

REPORT INFORMATION
  Report Type: Spontaneous
  Country: US (occurrence: US)
  Receive Date: 20140506
  Receipt Date: 20140508
  Transmission Date: 20141212
  Serious: No
  Sender: FDA-Public Use
  Company Number: US-009507513-1402USA013675

PATIENT
  Sex: Female

DRUGS (2)
  1. AFRIN [Suspect]
     Indication: SINUSITIS
     Dosage: UNK, UNKNOWN
     Route: 045
  2. FLONASE [Suspect]
     Indication: PRODUCT USED FOR UNKNOWN INDICATION
     Dosage: UNK, UNKNOWN
     Route: 045

REACTIONS (1)
  - Nasal discomfort [Unknown]
